FAERS Safety Report 4899470-4 (Version None)
Quarter: 2006Q1

REPORT INFORMATION
  Report Type: 
  Country: None (occurrence: None)
  Receive Date: 20060131
  Receipt Date: 20060109
  Transmission Date: 20060701
  Serious: Yes (Death)
  Sender: FDA-Public Use
  Company Number: MAG-2006-0000425

PATIENT
  Age: 71 Year
  Sex: Male

DRUGS (6)
  1. OXYCODONE HCL [Suspect]
     Indication: PAIN
     Dosage: 20 MG, BID, ORAL
     Route: 048
     Dates: start: 20060105
  2. OXYCODONE HCL IR IMMEDIATE RELEASE [Suspect]
     Indication: PAIN
     Dosage: 5 MG, TID
     Dates: start: 20060105
  3. TARCEVA [Concomitant]
  4. GEMCITABINE (GEMCITABINE) [Concomitant]
  5. CHLORPROMAZINE HCL [Concomitant]
  6. SENOKOT [Concomitant]

REACTIONS (2)
  - MALIGNANT NEOPLASM PROGRESSION [None]
  - PANCREATIC CARCINOMA [None]
